FAERS Safety Report 15725421 (Version 1)
Quarter: 2020Q3

REPORT INFORMATION
  Report Type: Spontaneous
  Country: ES (occurrence: ES)
  Receive Date: 20181215
  Receipt Date: 20181215
  Transmission Date: 20201105
  Serious: Yes (Life-Threatening, Hospitalization)
  Sender: FDA-Public Use
  Company Number: ES-ROCHE-2228250

PATIENT
  Age: 35 Year
  Sex: Female

DRUGS (6)
  1. ALECTINIB. [Suspect]
     Active Substance: ALECTINIB
     Indication: SELF-MEDICATION
     Route: 048
     Dates: start: 201809
  2. METAMIZOL [Suspect]
     Active Substance: METAMIZOLE SODIUM
     Indication: PRODUCT USED FOR UNKNOWN INDICATION
     Route: 048
     Dates: start: 201810
  3. FORTECORTIN [Suspect]
     Active Substance: DEXAMETHASONE
     Indication: DENTAL IMPLANTATION
     Route: 065
     Dates: start: 2018
  4. ZOMIG [Suspect]
     Active Substance: ZOLMITRIPTAN
     Indication: MIGRAINE
     Route: 048
     Dates: start: 2015
  5. RASPBERRY KETONES [Suspect]
     Active Substance: RASPBERRY KETONE
     Indication: SELF-MEDICATION
     Route: 048
     Dates: start: 201808
  6. PLANTAGO MAJOR [Suspect]
     Active Substance: PLANTAGO MAJOR
     Indication: SELF-MEDICATION
     Route: 048
     Dates: start: 201810

REACTIONS (2)
  - Hepatitis toxic [Unknown]
  - Hepatic encephalopathy [Unknown]

NARRATIVE: CASE EVENT DATE: 20181105
